FAERS Safety Report 7068117-3 (Version None)
Quarter: 2010Q4

REPORT INFORMATION
  Report Type: 
  Country: None (occurrence: None)
  Receive Date: 20101020
  Receipt Date: 20101008
  Transmission Date: 20110411
  Serious: Yes (Hospitalization)
  Sender: FDA-Public Use
  Company Number: OMPQ-NO-1010S-0906

PATIENT
  Age: 66 Year

DRUGS (1)
  1. OMNIPAQUE 140 [Suspect]
     Indication: PRODUCT USED FOR UNKNOWN INDICATION
     Dosage: , SINGLE DOSE, I.V.
     Route: 042
     Dates: start: 20100911, end: 20100911

REACTIONS (1)
  - LOSS OF CONSCIOUSNESS [None]
